FAERS Safety Report 24916238 (Version 1)
Quarter: 2025Q1

REPORT INFORMATION
  Report Type: Spontaneous
  Country: US (occurrence: None)
  Receive Date: 20250131
  Receipt Date: 20250131
  Transmission Date: 20250408
  Serious: No
  Sender: FDA-CTU
  Company Number: None

PATIENT
  Age: 66 Year
  Sex: Female
  Weight: 71 kg

DRUGS (1)
  1. VEOZAH [Suspect]
     Active Substance: FEZOLINETANT
     Indication: Autonomic nervous system imbalance
     Dosage: 45.00 MG DAILY ORAL
     Route: 048
     Dates: start: 20240403

REACTIONS (1)
  - Headache [None]

NARRATIVE: CASE EVENT DATE: 20240923
